FAERS Safety Report 16011425 (Version 1)
Quarter: 2019Q1

REPORT INFORMATION
  Report Type: Report from Study
  Country: IT (occurrence: IT)
  Receive Date: 20190227
  Receipt Date: 20190227
  Transmission Date: 20190418
  Serious: Yes (Other)
  Sender: FDA-Public Use
  Company Number: IT-TEVA-2019-IT-1016043

PATIENT
  Age: 54 Year
  Sex: Male

DRUGS (2)
  1. VELAMOX [Concomitant]
     Active Substance: AMOXICILLIN
  2. AZITHROMYCIN ANHYDROUS. [Suspect]
     Active Substance: AZITHROMYCIN ANHYDROUS
     Indication: BRONCHITIS
     Route: 048
     Dates: start: 20190130, end: 20190130

REACTIONS (2)
  - Pharyngeal oedema [Recovering/Resolving]
  - Scrotal oedema [Recovering/Resolving]

NARRATIVE: CASE EVENT DATE: 20190130
